FAERS Safety Report 8805076 (Version 2)
Quarter: 2015Q2

REPORT INFORMATION
  Report Type: Report from Study
  Country: US (occurrence: US)
  Receive Date: 20120924
  Receipt Date: 20150401
  Transmission Date: 20150821
  Serious: Yes (Death)
  Sender: FDA-Public Use
  Company Number: US-ROCHE-1126152

PATIENT
  Sex: Female

DRUGS (12)
  1. CARBOPLATIN. [Suspect]
     Active Substance: CARBOPLATIN
     Indication: PRODUCT USED FOR UNKNOWN INDICATION
     Dosage: DOSE RECEIVED ON 03/SEP/2010, 10/SEP/2010, 16/SEP/2010, 22/SEP/2010 AND 29/SEP/2010
     Route: 042
  2. BENADRYL [Concomitant]
     Active Substance: DIPHENHYDRAMINE HYDROCHLORIDE
     Dosage: DOSE RECEIVED ON 03/SEP/2010, 10/SEP/2010, 16/SEP/2010, 22/SEP/2010 AND 29/SEP/2010
     Route: 042
  3. TAXOL [Concomitant]
     Active Substance: PACLITAXEL
     Dosage: DOSE RECEIVED ON 03/SEP/2010, 10/SEP/2010, 16/SEP/2010, 22/SEP/2010 AND 29/SEP/2010
     Route: 042
  4. VALIUM [Concomitant]
     Active Substance: DIAZEPAM
     Route: 065
  5. AVASTIN [Suspect]
     Active Substance: BEVACIZUMAB
     Indication: RENAL CANCER
     Dosage: DOSE RECEIVED ON 10/SEP/2010, 16/SEP/2010.
     Route: 042
     Dates: start: 20100903
  6. PEPCID [Concomitant]
     Active Substance: FAMOTIDINE
     Route: 042
  7. DECADRON [Concomitant]
     Active Substance: DEXAMETHASONE
     Dosage: DOSE RECEIVED ON 03/SEP/2010, 10/SEP/2010, 16/SEP/2010, 22/SEP/2010 AND 29/SEP/2010
     Route: 042
  8. DILAUDID [Concomitant]
     Active Substance: HYDROMORPHONE HYDROCHLORIDE
     Dosage: EVERY 2 HOURS
     Route: 048
  9. FENTANYL. [Concomitant]
     Active Substance: FENTANYL
     Route: 065
  10. ALOXI [Concomitant]
     Active Substance: PALONOSETRON HYDROCHLORIDE
     Dosage: DOSE RECEIVED ON 03/SEP/2010, 10/SEP/2010, 16/SEP/2010, 22/SEP/2010 AND 29/SEP/2010
     Route: 042
  11. LORAZEPAM. [Concomitant]
     Active Substance: LORAZEPAM
     Dosage: EVERY 8 HOUR
     Route: 065
  12. MIRALAX [Concomitant]
     Active Substance: POLYETHYLENE GLYCOL 3350

REACTIONS (6)
  - Constipation [Unknown]
  - Back pain [Unknown]
  - Death [Fatal]
  - Flushing [Unknown]
  - Chest pain [Unknown]
  - Haematuria [Unknown]
